FAERS Safety Report 19100928 (Version 3)
Quarter: 2021Q2

REPORT INFORMATION
  Report Type: Report from Study
  Country: US (occurrence: US)
  Receive Date: 20210407
  Receipt Date: 20210526
  Transmission Date: 20210717
  Serious: Yes (Death, Hospitalization)
  Sender: FDA-Public Use
  Company Number: US-INSMED, INC.-US-INS-20-02434

PATIENT
  Age: 81 Year
  Sex: Female

DRUGS (1)
  1. ARIKAYCE [Suspect]
     Active Substance: AMIKACIN
     Indication: MYCOBACTERIAL INFECTION
     Dosage: 590 MILLIGRAM, QD
     Route: 055
     Dates: start: 202012, end: 2021

REACTIONS (18)
  - Nausea [Not Recovered/Not Resolved]
  - Product dose omission issue [Unknown]
  - Aphonia [Unknown]
  - Productive cough [Unknown]
  - Eating disorder [Not Recovered/Not Resolved]
  - Dysphonia [Unknown]
  - Therapy interrupted [Unknown]
  - Neoplasm malignant [Not Recovered/Not Resolved]
  - Vomiting [Not Recovered/Not Resolved]
  - Nausea [Recovered/Resolved]
  - Dysgeusia [Recovered/Resolved]
  - Depressed mood [Unknown]
  - Confusional state [Not Recovered/Not Resolved]
  - Retching [Unknown]
  - Death [Fatal]
  - Hospice care [Not Recovered/Not Resolved]
  - Abdominal pain upper [Not Recovered/Not Resolved]
  - Weight decreased [Unknown]

NARRATIVE: CASE EVENT DATE: 202012
